FAERS Safety Report 18765755 (Version 2)
Quarter: 2022Q4

REPORT INFORMATION
  Report Type: Spontaneous
  Country: US (occurrence: US)
  Receive Date: 20210120
  Receipt Date: 20221118
  Transmission Date: 20230112
  Serious: Yes (Other)
  Sender: FDA-Public Use
  Company Number: US-SA-2021SA009149

PATIENT
  Age: 53 Year
  Sex: Female

DRUGS (2)
  1. RANITIDINE HYDROCHLORIDE [Suspect]
     Active Substance: RANITIDINE HYDROCHLORIDE
     Indication: Dyspepsia
     Dosage: 150 MG, QD
     Dates: start: 198301, end: 201901
  2. RANITIDINE HYDROCHLORIDE [Suspect]
     Active Substance: RANITIDINE HYDROCHLORIDE
     Indication: Gastric ulcer

REACTIONS (2)
  - Breast cancer stage I [Recovering/Resolving]
  - Lung carcinoma cell type unspecified stage I [Unknown]

NARRATIVE: CASE EVENT DATE: 20140101
